FAERS Safety Report 11941653 (Version 1)
Quarter: 2016Q1

REPORT INFORMATION
  Report Type: Spontaneous
  Country: GB (occurrence: GB)
  Receive Date: 20160123
  Receipt Date: 20160123
  Transmission Date: 20160526
  Serious: Yes (Other)
  Sender: FDA-Public Use
  Company Number: GB-ACCORD-037159

PATIENT
  Age: 70 Year
  Sex: Male
  Weight: 200 kg

DRUGS (2)
  1. OMEPRAZOLE. [Concomitant]
     Active Substance: OMEPRAZOLE
     Dosage: HALF 10MG CAPSULE
  2. AMLODIPINE [Suspect]
     Active Substance: AMLODIPINE BESYLATE
     Indication: HYPERTENSION
     Route: 048
     Dates: start: 20150601, end: 20160103

REACTIONS (5)
  - Peripheral swelling [Recovering/Resolving]
  - Hypersomnia [Recovered/Resolved]
  - Muscle spasms [Recovered/Resolved]
  - Ear pain [Recovered/Resolved]
  - Lethargy [Recovered/Resolved]

NARRATIVE: CASE EVENT DATE: 20150801
